FAERS Safety Report 19887679 (Version 1)
Quarter: 2021Q3

REPORT INFORMATION
  Report Type: Spontaneous
  Country: US (occurrence: US)
  Receive Date: 20210924
  Receipt Date: 20210924
  Transmission Date: 20211014
  Serious: Yes (Hospitalization)
  Sender: FDA-Public Use
  Company Number: None

PATIENT
  Age: 83 Year
  Sex: Male
  Weight: 61.2 kg

DRUGS (5)
  1. GEMCITABINE HYDROCHLORIDE. [Suspect]
     Active Substance: GEMCITABINE HYDROCHLORIDE
     Dates: end: 20210909
  2. HYDROCODONE?ACETAMINOPHEN [Concomitant]
     Active Substance: ACETAMINOPHEN\HYDROCODONE
  3. PACLITAXEL PROTEIN?BOIUND PARTICLES (ALBUMIN BOUND) [Suspect]
     Active Substance: PACLITAXEL
     Dates: end: 20210909
  4. ONDANSETRON [Concomitant]
     Active Substance: ONDANSETRON
  5. PROCHLORPERAZINE. [Concomitant]
     Active Substance: PROCHLORPERAZINE

REACTIONS (20)
  - Sinus tachycardia [None]
  - Escherichia test positive [None]
  - Tremor [None]
  - Metastases to liver [None]
  - Hepatic neoplasm [None]
  - Constipation [None]
  - Retroperitoneal lymphadenopathy [None]
  - Supraventricular extrasystoles [None]
  - Bacteraemia [None]
  - Unresponsive to stimuli [None]
  - Diarrhoea [None]
  - Bladder hypertrophy [None]
  - Nasopharyngitis [None]
  - Asthenia [None]
  - Vomiting [None]
  - Bundle branch block bilateral [None]
  - Intestinal obstruction [None]
  - Abdominal pain [None]
  - Nausea [None]
  - Sepsis [None]

NARRATIVE: CASE EVENT DATE: 20210916
